FAERS Safety Report 6765105-9 (Version None)
Quarter: 2010Q2

REPORT INFORMATION
  Report Type: 
  Country: None (occurrence: None)
  Receive Date: 20100609
  Receipt Date: 20100609
  Transmission Date: 20101027
  Serious: Yes (Hospitalization)
  Sender: FDA-Public Use
  Company Number: None

PATIENT
  Sex: Female
  Weight: 88.2 kg

DRUGS (11)
  1. BENDAMUASTINE 10MG VIALS CEPHALON [Suspect]
     Indication: SMALL CELL LUNG CANCER STAGE UNSPECIFIED
     Dosage: 196 MG DAYS 1 AND 2 IV
     Route: 042
     Dates: start: 20100524, end: 20100525
  2. IRINOTECAN [Suspect]
     Dosage: 294MG DAYS 1 IV
     Route: 042
     Dates: start: 20100524
  3. COMPAZINE [Concomitant]
  4. ATIVAN [Concomitant]
  5. REGLAN [Concomitant]
  6. ALBUTEROL [Concomitant]
  7. DARVOCET [Concomitant]
  8. LISINOPRIL [Concomitant]
  9. PROTONIX [Concomitant]
  10. LOMOTIL [Concomitant]
  11. SANDOSATIN [Concomitant]

REACTIONS (5)
  - ABDOMINAL PAIN [None]
  - CLOSTRIDIAL INFECTION [None]
  - CULTURE URINE POSITIVE [None]
  - DIARRHOEA [None]
  - KLEBSIELLA INFECTION [None]
